FAERS Safety Report 17603524 (Version 1)
Quarter: 2020Q1

REPORT INFORMATION
  Report Type: Spontaneous
  Country: US (occurrence: US)
  Receive Date: 20200331
  Receipt Date: 20200331
  Transmission Date: 20200409
  Serious: No
  Sender: FDA-Public Use
  Company Number: US-GALDERMA-US19068146

PATIENT
  Age: 25 Year
  Sex: Female

DRUGS (10)
  1. PROACTIV GENTLE FORMULA CLARIFYING CLEANSER [Concomitant]
     Active Substance: SALICYLIC ACID
     Indication: RASH
     Route: 061
     Dates: start: 201808, end: 201908
  2. PROACTIV MD ADAPALENE ACNE TREATMENT [Suspect]
     Active Substance: ADAPALENE
     Indication: RASH
     Dosage: 0.1%
     Route: 061
     Dates: start: 201808, end: 201908
  3. PROACTIV MD DEEP CLEANSING FACE WASH [Concomitant]
     Active Substance: COSMETICS
     Indication: RASH
     Route: 061
     Dates: start: 201808, end: 201908
  4. PROACTIV GENTLE FORMULA CLARIFYING TONER [Concomitant]
     Indication: RASH
     Route: 061
     Dates: start: 201808, end: 201908
  5. IUD NOS [Concomitant]
     Active Substance: COPPER OR LEVONORGESTREL
  6. PROACTIV GENTLE FORMULA CLARIFYING DAY LOTION [Concomitant]
     Indication: RASH
     Route: 061
     Dates: start: 201808, end: 201908
  7. PROACTIV DEEP CLEANSING WASH [Concomitant]
     Active Substance: SALICYLIC ACID
     Indication: RASH
     Route: 061
     Dates: start: 201808, end: 201908
  8. PROACTIV MD DAILY OIL CONTROL SPF 30 [Suspect]
     Active Substance: AVOBENZONE\OCTISALATE\OCTOCRYLENE
     Indication: RASH
     Route: 061
     Dates: start: 201808, end: 201908
  9. PROACTIV SOLUTION BLACKHEAD DISSOLVING [Concomitant]
     Active Substance: SALICYLIC ACID
     Indication: RASH
     Route: 061
     Dates: start: 201808, end: 201908
  10. PROACTIV GENTLE FORMULA CLARIFYING NIGHT LOTION [Concomitant]
     Indication: RASH
     Route: 061
     Dates: start: 201808, end: 201908

REACTIONS (4)
  - Product use in unapproved indication [Recovered/Resolved]
  - Drug ineffective [Unknown]
  - Acne [Recovered/Resolved]
  - Dry skin [Recovered/Resolved]

NARRATIVE: CASE EVENT DATE: 201808
